FAERS Safety Report 10120810 (Version 2)
Quarter: 2014Q2

REPORT INFORMATION
  Report Type: Report from Study
  Country: AR (occurrence: AR)
  Receive Date: 20140425
  Receipt Date: 20140522
  Transmission Date: 20141212
  Serious: Yes (Death, Hospitalization)
  Sender: FDA-Public Use
  Company Number: AR-BRISTOL-MYERS SQUIBB COMPANY-20644480

PATIENT
  Age: 87 Year
  Sex: Female

DRUGS (1)
  1. YERVOY [Suspect]
     Dosage: INTERRUPTED ON 09APR14.16APR2014
     Dates: start: 20140129, end: 20140416

REACTIONS (4)
  - Death [Fatal]
  - Dehydration [Recovering/Resolving]
  - Blood sodium decreased [Recovering/Resolving]
  - Syncope [Recovering/Resolving]
